FAERS Safety Report 6345615-9 (Version None)
Quarter: 2009Q3

REPORT INFORMATION
  Report Type: 
  Country: None (occurrence: None)
  Receive Date: 20090909
  Receipt Date: 20090902
  Transmission Date: 20100115
  Serious: Yes (Hospitalization, Other)
  Sender: FDA-Public Use
  Company Number: US-ROCHE-651440

PATIENT
  Sex: Male

DRUGS (5)
  1. XELODA [Suspect]
     Indication: COLON CANCER
     Route: 048
     Dates: start: 20090601
  2. AVASTIN [Suspect]
     Indication: COLON CANCER
     Route: 042
     Dates: start: 20060701
  3. COUMADIN [Suspect]
     Indication: PULMONARY EMBOLISM
     Route: 065
  4. ATENOLOL [Concomitant]
     Indication: HYPERTENSION
  5. GABAPENTIN [Concomitant]

REACTIONS (4)
  - BLEEDING TIME PROLONGED [None]
  - COAGULOPATHY [None]
  - PULMONARY EMBOLISM [None]
  - RENAL HAEMORRHAGE [None]
